FAERS Safety Report 24433607 (Version 2)
Quarter: 2024Q4

REPORT INFORMATION
  Report Type: Spontaneous
  Country: CA (occurrence: CA)
  Receive Date: 20241014
  Receipt Date: 20241206
  Transmission Date: 20250114
  Serious: Yes (Other)
  Sender: PFIZER
  Company Number: CA-PFIZER INC-202400052068

PATIENT
  Age: 15 Year
  Sex: Male
  Weight: 55.5 kg

DRUGS (2)
  1. ABRILADA [Suspect]
     Active Substance: ADALIMUMAB-AFZB
     Indication: Crohn^s disease
     Dosage: 40 MG, EVERY 2 WEEKS, WEEK  0 - 160 MG, WEEK 2 - 80 MG THEN 40 MG EVERY OTHER WEEK
     Route: 058
     Dates: start: 20240312
  2. ABRILADA [Suspect]
     Active Substance: ADALIMUMAB-AFZB
     Dosage: 40 MG, WEEKLY (NOT STARTED YET)
     Route: 058

REACTIONS (4)
  - Anal abscess [Unknown]
  - Off label use [Unknown]
  - Off label use [Unknown]
  - Drug level below therapeutic [Unknown]

NARRATIVE: CASE EVENT DATE: 20240101
